FAERS Safety Report 19823961 (Version 9)
Quarter: 2022Q1

REPORT INFORMATION
  Report Type: Spontaneous
  Country: US (occurrence: US)
  Receive Date: 20210914
  Receipt Date: 20220318
  Transmission Date: 20220423
  Serious: Yes (Life-Threatening, Hospitalization, Other)
  Sender: FDA-Public Use
  Company Number: US-GLAXOSMITHKLINE-US2021AMR192608

PATIENT
  Age: 69 Year
  Sex: Female
  Weight: 114 kg

DRUGS (6)
  1. ZEJULA [Suspect]
     Active Substance: NIRAPARIB
     Indication: Ovarian cancer
     Dosage: 300 MG, QD
     Dates: start: 20210901, end: 20210915
  2. ZEJULA [Suspect]
     Active Substance: NIRAPARIB
     Dosage: 100 MG, QD
     Dates: start: 20211007
  3. ZEJULA [Suspect]
     Active Substance: NIRAPARIB
     Dosage: 200 MG, QD
     Dates: start: 202112
  4. ZEJULA [Suspect]
     Active Substance: NIRAPARIB
     Dosage: 300 MG, QD
  5. ZEJULA [Suspect]
     Active Substance: NIRAPARIB
     Dosage: 200 MG, QD
  6. ZEJULA [Suspect]
     Active Substance: NIRAPARIB
     Dosage: 300 MG, QD
     Route: 048

REACTIONS (10)
  - Thrombocytopenia [Unknown]
  - Neutropenia [Recovering/Resolving]
  - Anaemia [Recovering/Resolving]
  - Platelet count decreased [Recovered/Resolved]
  - Recurrent cancer [Unknown]
  - Nausea [Recovered/Resolved]
  - Hypertension [Unknown]
  - Neutrophil count decreased [Unknown]
  - Haemoglobin decreased [Unknown]
  - Haematocrit decreased [Unknown]

NARRATIVE: CASE EVENT DATE: 20210901
